FAERS Safety Report 7265092-3 (Version None)
Quarter: 2011Q1

REPORT INFORMATION
  Report Type: 
  Country: None (occurrence: None)
  Receive Date: 20110131
  Receipt Date: 20110125
  Transmission Date: 20110831
  Serious: Yes (Other)
  Sender: FDA-Public Use
  Company Number: FR-GENZYME-FLUD-1000666

PATIENT
  Age: 61 Year
  Sex: Male

DRUGS (10)
  1. FLUDARA [Suspect]
  2. FLUDARA [Suspect]
     Indication: WALDENSTROM'S MACROGLOBULINAEMIA
     Dosage: UNK
     Route: 065
  3. VINCRISTINE [Suspect]
     Indication: WALDENSTROM'S MACROGLOBULINAEMIA
     Dosage: UNK
     Route: 065
  4. FLUDARA [Suspect]
     Dosage: UNK
     Route: 065
  5. FLUDARA [Suspect]
  6. FLUDARA [Suspect]
  7. CYCLOPHOSPHAMIDE [Suspect]
     Indication: WALDENSTROM'S MACROGLOBULINAEMIA
     Dosage: UNK
     Route: 065
  8. DOXORUBICIN [Suspect]
     Indication: WALDENSTROM'S MACROGLOBULINAEMIA
     Dosage: UNK
     Route: 065
  9. PREDNISONE [Suspect]
     Indication: WALDENSTROM'S MACROGLOBULINAEMIA
     Dosage: UNK
     Route: 065
  10. FLUDARA [Suspect]

REACTIONS (1)
  - WALDENSTROM'S MACROGLOBULINAEMIA RECURRENT [None]
